FAERS Safety Report 10681738 (Version 2)
Quarter: 2015Q1

REPORT INFORMATION
  Report Type: Spontaneous
  Country: IT (occurrence: IT)
  Receive Date: 20141230
  Receipt Date: 20150311
  Transmission Date: 20150720
  Serious: Yes (Hospitalization)
  Sender: FDA-Public Use
  Company Number: IT-RANBAXY-2014RR-90896

PATIENT
  Age: 78 Year
  Sex: Female

DRUGS (3)
  1. AMOXICILLIN. [Suspect]
     Active Substance: AMOXICILLIN
     Indication: DENTAL IMPLANTATION
     Dosage: 2 G, DAILY
     Route: 048
     Dates: start: 20141119, end: 20141123
  2. PANTORC [Concomitant]
     Active Substance: PANTOPRAZOLE SODIUM
     Indication: PRODUCT USED FOR UNKNOWN INDICATION
     Dosage: 1 DF, UNK
     Route: 065
  3. SYNFLEX [Suspect]
     Active Substance: NAPROXEN SODIUM
     Indication: DENTAL IMPLANTATION
     Dosage: 1 DF, DAILY
     Route: 048
     Dates: start: 20141119, end: 20141123

REACTIONS (1)
  - Abdominal pain upper [Recovering/Resolving]

NARRATIVE: CASE EVENT DATE: 20141123
